FAERS Safety Report 4298579-6 (Version None)
Quarter: 2004Q1

REPORT INFORMATION
  Report Type: 
  Country: None (occurrence: None)
  Receive Date: 20040126
  Receipt Date: 20031027
  Transmission Date: 20041129
  Serious: No
  Sender: FDA-Public Use
  Company Number: USA031050838

PATIENT
  Age: 9 Year
  Sex: Male
  Weight: 59 kg

DRUGS (1)
  1. STRATTERA [Suspect]
     Dosage: 75 MG/DAY
     Dates: start: 20030906

REACTIONS (3)
  - ANOREXIA [None]
  - MOOD SWINGS [None]
  - WEIGHT DECREASED [None]
